FAERS Safety Report 17847385 (Version 5)
Quarter: 2020Q3

REPORT INFORMATION
  Report Type: Report from Study
  Country: US (occurrence: US)
  Receive Date: 20200601
  Receipt Date: 20200818
  Transmission Date: 20201103
  Serious: Yes (Hospitalization, Other)
  Sender: FDA-Public Use
  Company Number: US-EISAI MEDICAL RESEARCH-EC-2020-073759

PATIENT
  Age: 65 Year
  Sex: Female
  Weight: 97 kg

DRUGS (12)
  1. NIACIN. [Concomitant]
     Active Substance: NIACIN
  2. VITAMIN B12 [Concomitant]
     Active Substance: CYANOCOBALAMIN
  3. TYLENOL EXTRA STRENGTH [Concomitant]
     Active Substance: ACETAMINOPHEN
  4. VESICARE [Concomitant]
     Active Substance: SOLIFENACIN SUCCINATE
  5. CALCIUM + VIT D [Concomitant]
     Active Substance: CALCIUM\VITAMIN D
  6. VITAMIN B?6 [Concomitant]
     Active Substance: PYRIDOXINE
  7. ACYCLOVIR. [Concomitant]
     Active Substance: ACYCLOVIR
  8. LENVIMA [Suspect]
     Active Substance: LENVATINIB
     Indication: UTERINE CANCER
     Route: 048
     Dates: start: 20200417, end: 20200429
  9. ALEVE [Concomitant]
     Active Substance: NAPROXEN SODIUM
  10. FISH OIL [Concomitant]
     Active Substance: FISH OIL
  11. LENVIMA [Suspect]
     Active Substance: LENVATINIB
     Indication: ENDOMETRIAL CANCER
     Route: 048
     Dates: start: 20200527
  12. KEYTRUDA [Concomitant]
     Active Substance: PEMBROLIZUMAB

REACTIONS (17)
  - Fatigue [Not Recovered/Not Resolved]
  - Blood magnesium decreased [Not Recovered/Not Resolved]
  - Constipation [Not Recovered/Not Resolved]
  - Hypotension [Recovered/Resolved]
  - Thyroid function test abnormal [Unknown]
  - Blood pressure increased [Recovering/Resolving]
  - Abdominal pain upper [Recovered/Resolved]
  - Retching [Recovered/Resolved]
  - Blood magnesium decreased [Unknown]
  - Dry mouth [Recovering/Resolving]
  - Nausea [Recovered/Resolved]
  - Erythema [Not Recovered/Not Resolved]
  - Anal fissure [Unknown]
  - Cardiac failure congestive [Not Recovered/Not Resolved]
  - Oral discomfort [Not Recovered/Not Resolved]
  - Flushing [Not Recovered/Not Resolved]
  - Decreased appetite [Recovered/Resolved]

NARRATIVE: CASE EVENT DATE: 2020
